FAERS Safety Report 20894901 (Version 1)
Quarter: 2022Q2

REPORT INFORMATION
  Report Type: Spontaneous
  Country: US (occurrence: None)
  Receive Date: 20220528
  Receipt Date: 20220528
  Transmission Date: 20220721
  Serious: No
  Sender: FDA-Public Use
  Company Number: None

PATIENT
  Age: 3 Year
  Sex: Male

DRUGS (1)
  1. BOTOX [Suspect]
     Active Substance: ONABOTULINUMTOXINA
     Indication: Cerebral palsy
     Dosage: OTHER QUANTITY : 200 UNITS;?OTHER FREQUENCY : OTHER;?
     Route: 030
     Dates: start: 202202, end: 202202

REACTIONS (3)
  - Muscular weakness [None]
  - Stress fracture [None]
  - Foot fracture [None]

NARRATIVE: CASE EVENT DATE: 20220511
